FAERS Safety Report 13754038 (Version 1)
Quarter: 2017Q3

REPORT INFORMATION
  Report Type: Spontaneous
  Country: GB (occurrence: GB)
  Receive Date: 20170714
  Receipt Date: 20170714
  Transmission Date: 20171127
  Serious: Yes (Hospitalization)
  Sender: FDA-Public Use
  Company Number: GB-009507513-1707GBR002340

PATIENT
  Age: 51 Year
  Sex: Male
  Weight: 70 kg

DRUGS (15)
  1. BENDROFLUMETHIAZIDE [Concomitant]
     Active Substance: BENDROFLUMETHIAZIDE
  2. DIAZEPAM. [Concomitant]
     Active Substance: DIAZEPAM
  3. SENNA [Concomitant]
     Active Substance: SENNA LEAF\SENNOSIDES\SENNOSIDES A AND B
  4. RANITIDINE. [Concomitant]
     Active Substance: RANITIDINE
  5. LORAZEPAM. [Concomitant]
     Active Substance: LORAZEPAM
  6. VENLAFAXINE HYDROCHLORIDE. [Concomitant]
     Active Substance: VENLAFAXINE HYDROCHLORIDE
  7. ERTAPENEM SODIUM [Suspect]
     Active Substance: ERTAPENEM SODIUM
     Indication: HIDRADENITIS
     Dosage: 1 G, QD
     Route: 042
     Dates: start: 20170528, end: 20170608
  8. CODEINE [Concomitant]
     Active Substance: CODEINE
  9. OLANZAPINE. [Concomitant]
     Active Substance: OLANZAPINE
  10. THIAMINE. [Concomitant]
     Active Substance: THIAMINE
  11. CLARITHROMYCIN. [Concomitant]
     Active Substance: CLARITHROMYCIN
  12. CLOZAPINE. [Concomitant]
     Active Substance: CLOZAPINE
  13. FERROUS FUMARATE [Concomitant]
     Active Substance: FERROUS FUMARATE
  14. LACTULOSE. [Concomitant]
     Active Substance: LACTULOSE
  15. SITAGLIPTIN PHOSPHATE [Concomitant]
     Active Substance: SITAGLIPTIN PHOSPHATE

REACTIONS (1)
  - Epilepsy [Recovered/Resolved]

NARRATIVE: CASE EVENT DATE: 20170608
